FAERS Safety Report 7077355-5 (Version None)
Quarter: 2010Q4

REPORT INFORMATION
  Report Type: 
  Country: None (occurrence: None)
  Receive Date: 20101022
  Receipt Date: 20101007
  Transmission Date: 20110411
  Serious: Yes (Death)
  Sender: FDA-Public Use
  Company Number: AE 2010-315

PATIENT
  Age: 46 Year
  Sex: Female

DRUGS (1)
  1. FAZACLO ODT [Suspect]
     Dosage: 600 MG DAILY PO
     Route: 048
     Dates: start: 20090923, end: 20100101

REACTIONS (1)
  - DEATH [None]
